FAERS Safety Report 23509488 (Version 3)
Quarter: 2025Q3

REPORT INFORMATION
  Report Type: Other
  Country: US (occurrence: US)
  Receive Date: 20240210
  Receipt Date: 20250922
  Transmission Date: 20251020
  Serious: No
  Sender: TRAVERE THERAPEUTICS
  Company Number: US-TRAVERE-2024TVT00063

PATIENT
  Sex: Male

DRUGS (6)
  1. FILSPARI [Suspect]
     Active Substance: SPARSENTAN
     Indication: IgA nephropathy
     Route: 048
     Dates: start: 20231213
  2. FILSPARI [Suspect]
     Active Substance: SPARSENTAN
     Route: 048
  3. FILSPARI [Suspect]
     Active Substance: SPARSENTAN
     Dosage: SPLITTING 200MG TABLETS IN HALF
     Route: 048
  4. FILSPARI [Suspect]
     Active Substance: SPARSENTAN
     Route: 048
  5. FILSPARI [Suspect]
     Active Substance: SPARSENTAN
     Route: 048
     Dates: start: 20250724
  6. FARXIGA [Concomitant]
     Active Substance: DAPAGLIFLOZIN PROPANEDIOL

REACTIONS (6)
  - Peripheral swelling [Unknown]
  - Dizziness [Unknown]
  - Pruritus [Recovering/Resolving]
  - Pruritus genital [Recovering/Resolving]
  - Genital injury [Unknown]
  - Product administration error [Unknown]
